FAERS Safety Report 20644799 (Version 2)
Quarter: 2022Q3

REPORT INFORMATION
  Report Type: Spontaneous
  Country: CA (occurrence: CA)
  Receive Date: 20220328
  Receipt Date: 20220712
  Transmission Date: 20221027
  Serious: Yes (Other)
  Sender: FDA-Public Use
  Company Number: CA-GLAXOSMITHKLINE-CA2022GSK053230

PATIENT

DRUGS (2)
  1. ZANTAC [Suspect]
     Active Substance: RANITIDINE HYDROCHLORIDE
     Indication: Gastrooesophageal reflux disease
     Dosage: UNK
     Route: 065
     Dates: start: 2007, end: 2018
  2. ZANTAC [Suspect]
     Active Substance: RANITIDINE HYDROCHLORIDE
     Indication: Dyspepsia

REACTIONS (10)
  - Transitional cell carcinoma [Unknown]
  - Bladder cancer [Unknown]
  - Haematuria [Unknown]
  - Bladder neoplasm [Unknown]
  - Bladder diverticulum [Unknown]
  - Benign neoplasm of bladder [Unknown]
  - Bladder discomfort [Unknown]
  - Bladder spasm [Unknown]
  - Cystitis noninfective [Unknown]
  - Bladder hypertrophy [Unknown]
